FAERS Safety Report 23772292 (Version 2)
Quarter: 2024Q3

REPORT INFORMATION
  Report Type: Spontaneous
  Country: IT (occurrence: IT)
  Receive Date: 20240423
  Receipt Date: 20240726
  Transmission Date: 20241016
  Serious: Yes (Other)
  Sender: AUROBINDO
  Company Number: IT-AUROBINDO-AUR-APL-2024-018059

PATIENT
  Age: 45 Year
  Sex: Female

DRUGS (11)
  1. BENDAMUSTINE [Suspect]
     Active Substance: BENDAMUSTINE
     Indication: Non-Hodgkin^s lymphoma
     Dosage: UNK
     Route: 065
  2. DOXORUBICIN [Suspect]
     Active Substance: DOXORUBICIN
     Indication: Non-Hodgkin^s lymphoma
     Dosage: UNK
     Route: 065
  3. CYCLOPHOSPHAMIDE [Suspect]
     Active Substance: CYCLOPHOSPHAMIDE
     Indication: Non-Hodgkin^s lymphoma
     Dosage: UNK
     Route: 065
  4. ERYTHROPOIETIN [Suspect]
     Active Substance: ERYTHROPOIETIN
     Indication: Anaemia
     Dosage: UNK
     Route: 065
  5. METHOTREXATE [Suspect]
     Active Substance: METHOTREXATE
     Indication: Non-Hodgkin^s lymphoma
     Dosage: UNK (HIGH-DOSE)
     Route: 065
  6. RITUXIMAB [Suspect]
     Active Substance: RITUXIMAB
     Indication: Non-Hodgkin^s lymphoma
     Dosage: UNK
     Route: 065
  7. VINCRISTINE [Suspect]
     Active Substance: VINCRISTINE
     Indication: Non-Hodgkin^s lymphoma
     Dosage: UNK
     Route: 065
  8. CYTARABINE [Concomitant]
     Active Substance: CYTARABINE
     Indication: Stem cell transplant
     Dosage: UNK
     Route: 065
  9. FOTEMUSTINE [Concomitant]
     Active Substance: FOTEMUSTINE
     Indication: Stem cell transplant
     Dosage: UNK
     Route: 065
  10. ETOPOSIDE [Concomitant]
     Active Substance: ETOPOSIDE
     Indication: Stem cell transplant
     Dosage: UNK
     Route: 065
  11. MELPHALAN [Concomitant]
     Active Substance: MELPHALAN
     Indication: Stem cell transplant
     Dosage: UNK
     Route: 065

REACTIONS (1)
  - Drug ineffective [Unknown]
